FAERS Safety Report 22324228 (Version 1)
Quarter: 2023Q2

REPORT INFORMATION
  Report Type: Spontaneous
  Country: BR (occurrence: BR)
  Receive Date: 20230516
  Receipt Date: 20230516
  Transmission Date: 20230722
  Serious: Yes (Other)
  Sender: FDA-Public Use
  Company Number: BR-AMGEN-BRASP2023080718

PATIENT

DRUGS (1)
  1. EVENITY [Suspect]
     Active Substance: ROMOSOZUMAB-AQQG
     Indication: Product used for unknown indication
     Dosage: UNK
     Route: 065

REACTIONS (7)
  - Lower limb fracture [Unknown]
  - Dizziness [Recovering/Resolving]
  - Vision blurred [Unknown]
  - Nausea [Unknown]
  - Neck pain [Unknown]
  - Headache [Recovering/Resolving]
  - Rash [Unknown]
